FAERS Safety Report 8434437-0 (Version None)
Quarter: 2012Q2

REPORT INFORMATION
  Report Type: 
  Country: None (occurrence: None)
  Receive Date: 20120614
  Receipt Date: 20120605
  Transmission Date: 20120825
  Serious: Yes (Life-Threatening, Other)
  Sender: FDA-Public Use
  Company Number: JP-BRISTOL-MYERS SQUIBB COMPANY-16532137

PATIENT
  Age: 78 Year
  Sex: Male

DRUGS (1)
  1. MAXIPIME [Suspect]
     Dates: start: 20120401

REACTIONS (1)
  - ALTERED STATE OF CONSCIOUSNESS [None]
